FAERS Safety Report 15727298 (Version 2)
Quarter: 2018Q4

REPORT INFORMATION
  Report Type: Spontaneous
  Country: NO (occurrence: NO)
  Receive Date: 20181217
  Receipt Date: 20181221
  Transmission Date: 20190205
  Serious: Yes (Hospitalization, Other)
  Sender: FDA-Public Use
  Company Number: NO-ASTRAZENECA-2018SF64255

PATIENT
  Age: 63 Year
  Sex: Male

DRUGS (5)
  1. ATARAX [Concomitant]
     Active Substance: HYDROXYZINE HYDROCHLORIDE
     Indication: PRURITUS
     Dosage: 50 MG
     Route: 048
     Dates: start: 20180915, end: 20181110
  2. SEROQUEL [Suspect]
     Active Substance: QUETIAPINE FUMARATE
     Indication: MANIA
     Dosage: 400 MG
     Route: 048
     Dates: start: 20181001, end: 20181104
  3. CISORDINOL-ACUTARD [Suspect]
     Active Substance: ZUCLOPENTHIXOL ACETATE
     Indication: MANIA
     Dosage: 100 MG
     Route: 030
     Dates: start: 20181106, end: 20181109
  4. TEMESTA EXPIDET [Concomitant]
     Active Substance: LORAZEPAM
     Indication: AGGRESSION
     Dosage: UP TO 10 MG
     Route: 048
     Dates: start: 20181020
  5. LITHIONIT [Suspect]
     Active Substance: LITHIUM SULFATE
     Indication: MANIA
     Route: 048
     Dates: start: 20181102, end: 20181109

REACTIONS (2)
  - Urinary retention [Recovering/Resolving]
  - Neuroleptic malignant syndrome [Recovering/Resolving]

NARRATIVE: CASE EVENT DATE: 20181108
